FAERS Safety Report 4518222-8 (Version None)
Quarter: 2004Q4

REPORT INFORMATION
  Report Type: 
  Country: None (occurrence: None)
  Receive Date: 20041130
  Receipt Date: 20041111
  Transmission Date: 20050328
  Serious: Yes (Other)
  Sender: FDA-Public Use
  Company Number: USA041183951

PATIENT
  Age: 60 Year
  Sex: Female

DRUGS (7)
  1. EVISTA [Suspect]
     Indication: OSTEOPOROSIS
     Dosage: 62 MG
  2. SYNTHROID [Concomitant]
  3. FOLIC ACID [Concomitant]
  4. SPIRONOLACTONE [Concomitant]
  5. EVOXAC [Concomitant]
  6. HYOSCYAMINE [Concomitant]
  7. PLAQUENIL [Concomitant]

REACTIONS (14)
  - ANGIONEUROTIC OEDEMA [None]
  - CONTUSION [None]
  - DRUG INEFFECTIVE [None]
  - EAR PAIN [None]
  - FACIAL PAIN [None]
  - INFLAMMATION [None]
  - MOANING [None]
  - NAUSEA [None]
  - OESOPHAGEAL SPASM [None]
  - OESOPHAGITIS [None]
  - PHARYNGOLARYNGEAL PAIN [None]
  - SIALOADENITIS [None]
  - SJOGREN'S SYNDROME [None]
  - URTICARIA [None]
